FAERS Safety Report 16915108 (Version 23)
Quarter: 2024Q2

REPORT INFORMATION
  Report Type: Spontaneous
  Country: US (occurrence: US)
  Receive Date: 20191014
  Receipt Date: 20240614
  Transmission Date: 20240716
  Serious: Yes (Other)
  Sender: FDA-Public Use
  Company Number: US-PFIZER INC-2019040305

PATIENT
  Age: 70 Year
  Sex: Female

DRUGS (9)
  1. PREMARIN [Suspect]
     Active Substance: ESTROGENS, CONJUGATED
     Indication: Vulvovaginal dryness
     Dosage: 0.5 G, 2X/WEEK (0.5 G 2 NIGHTS PER WEEK)
     Route: 067
  2. PREMARIN [Suspect]
     Active Substance: ESTROGENS, CONJUGATED
     Dosage: UNK STRENGTH: 625G
  3. PREMARIN [Suspect]
     Active Substance: ESTROGENS, CONJUGATED
     Dosage: UNK (STRENGTH: 0.5 G /QUANTITY FOR 90 DAYS: 3 TUBES)
  4. PREMARIN [Suspect]
     Active Substance: ESTROGENS, CONJUGATED
     Dosage: 0.5 G, PEA SIZED AMOUNT ON OUTSIDE OF VAGINA THREE TIMES PER WEEK
     Route: 061
  5. PREMARIN [Suspect]
     Active Substance: ESTROGENS, CONJUGATED
     Dosage: APPLY 1/2 INCH EVERY OTHER DAY TO VAGINAL AREA.
     Route: 067
  6. PREMARIN [Suspect]
     Active Substance: ESTROGENS, CONJUGATED
     Dosage: HALF A GRAM 3 TIMES A DAY
  7. PREMARIN [Suspect]
     Active Substance: ESTROGENS, CONJUGATED
     Dosage: APPLY 1/2 INCH EVERY OTHER DAY TO VAGINAL AREA
     Route: 067
  8. PREMARIN [Suspect]
     Active Substance: ESTROGENS, CONJUGATED
     Dosage: PEG SIZE, BID
     Route: 067
  9. PREMARIN [Suspect]
     Active Substance: ESTROGENS, CONJUGATED
     Dosage: APPLY 0.5 GRAM(S) ON THE OUTSIDE OF THE VAGINA THREE TIMES A WEEK
     Route: 061

REACTIONS (13)
  - Kidney infection [Recovered/Resolved]
  - Cystitis [Recovered/Resolved]
  - Breast cancer recurrent [Not Recovered/Not Resolved]
  - Cough [Unknown]
  - Fatigue [Unknown]
  - Malaise [Unknown]
  - Dehydration [Unknown]
  - Product prescribing error [Unknown]
  - Intentional product misuse [Unknown]
  - Off label use [Unknown]
  - Off label use [Unknown]
  - Overdose [Unknown]
  - Contraindicated product administered [Unknown]
